FAERS Safety Report 25610244 (Version 1)
Quarter: 2025Q3

REPORT INFORMATION
  Report Type: Spontaneous
  Country: US (occurrence: US)
  Receive Date: 20250728
  Receipt Date: 20250728
  Transmission Date: 20251020
  Serious: No
  Sender: SAREPTA THERAPEUTICS
  Company Number: US-SAREPTA THERAPEUTICS INC.-SRP2025-006027

PATIENT
  Sex: Male

DRUGS (2)
  1. AMONDYS 45 [Suspect]
     Active Substance: CASIMERSEN
     Indication: Product used for unknown indication
     Route: 042
     Dates: end: 20250516
  2. AMONDYS 45 [Suspect]
     Active Substance: CASIMERSEN
     Route: 042
     Dates: start: 20250518

REACTIONS (2)
  - Rhinorrhoea [Unknown]
  - Pyrexia [Unknown]
